FAERS Safety Report 4832171-7 (Version None)
Quarter: 2005Q4

REPORT INFORMATION
  Report Type: 
  Country: None (occurrence: None)
  Receive Date: 20051118
  Receipt Date: 20051111
  Transmission Date: 20060501
  Serious: Yes (Hospitalization, Disabling)
  Sender: FDA-Public Use
  Company Number: US-MERCK-0511USA01908

PATIENT
  Age: 55 Year
  Sex: Female
  Weight: 82 kg

DRUGS (7)
  1. VIOXX [Suspect]
     Indication: BACK PAIN
     Route: 048
     Dates: start: 20030714, end: 20031110
  2. AVANDIA [Concomitant]
     Route: 065
  3. DIOVAN [Concomitant]
     Route: 065
  4. GLYBURIDE [Concomitant]
     Route: 065
  5. PREMARIN [Concomitant]
     Route: 065
  6. EFFEXOR [Concomitant]
     Route: 065
  7. TRAMADOLOR [Concomitant]
     Route: 065

REACTIONS (3)
  - CARDIAC DISORDER [None]
  - INTENTIONAL OVERDOSE [None]
  - MYOCARDIAL INFARCTION [None]
